FAERS Safety Report 15698500 (Version 1)
Quarter: 2018Q4

REPORT INFORMATION
  Report Type: Spontaneous
  Country: US (occurrence: US)
  Receive Date: 20181207
  Receipt Date: 20181207
  Transmission Date: 20190205
  Serious: No
  Sender: FDA-Public Use
  Company Number: US-BAUSCH-BL-2016-026631

PATIENT
  Sex: Female

DRUGS (2)
  1. AMBI FADE CREAM OILY SKIN (AMBI FADE CREAM OILY SKIN 2OZ) [Suspect]
     Active Substance: HYDROQUINONE\OCTINOXATE
     Indication: PRODUCT USED FOR UNKNOWN INDICATION
     Dosage: ONCE DAILY IN THE MORNING
     Route: 061
  2. CLINDAMYCIN AND BENZOYL PEROXIDE [Suspect]
     Active Substance: BENZOYL PEROXIDE\CLINDAMYCIN PHOSPHATE
     Indication: ACNE
     Dosage: QHS
     Route: 061

REACTIONS (1)
  - Drug effect incomplete [Unknown]
